FAERS Safety Report 8514819-9 (Version None)
Quarter: 2012Q3

REPORT INFORMATION
  Report Type: 
  Country: None (occurrence: None)
  Receive Date: 20120711
  Receipt Date: 20120711
  Transmission Date: 20120928
  Serious: Yes (Hospitalization, Disabling, Other)
  Sender: FDA-Public Use
  Company Number: None

PATIENT
  Age: 45 Year
  Sex: Female
  Weight: 104.3273 kg

DRUGS (4)
  1. DEPAKOTE [Concomitant]
  2. CYMBALTA [Suspect]
     Indication: BIPOLAR I DISORDER
     Dosage: 60 QD BUCCAL
     Route: 002
     Dates: start: 20070101, end: 20120709
  3. TRAZODONE HYDROCHLORIDE [Suspect]
     Indication: INSOMNIA
     Dosage: QD BUCCAL
     Route: 002
     Dates: start: 20120408, end: 20120514
  4. TRAZODONE HYDROCHLORIDE [Suspect]
     Indication: DEPRESSION
     Dosage: QD BUCCAL
     Route: 002
     Dates: start: 20120408, end: 20120514

REACTIONS (13)
  - HOSTILITY [None]
  - ANGER [None]
  - IMPAIRED WORK ABILITY [None]
  - LETHARGY [None]
  - FATIGUE [None]
  - MYALGIA [None]
  - DEPRESSED MOOD [None]
  - INSOMNIA [None]
  - SUICIDE ATTEMPT [None]
  - PAIN [None]
  - ANXIETY [None]
  - FEAR [None]
  - PARAESTHESIA [None]
